FAERS Safety Report 8375711 (Version 2)
Quarter: 2013Q1

REPORT INFORMATION
  Report Type: Report from Study
  Country: US (occurrence: US)
  Receive Date: 20120129
  Receipt Date: 20130129
  Transmission Date: 20140127
  Serious: Yes (Hospitalization)
  Sender: FDA-Public Use
  Company Number: US-ABBOTT-11P-163-0883458-00

PATIENT
  Age: 43 Year
  Sex: Male

DRUGS (3)
  1. HUMIRA 40 MG/0.8 ML PEN [Suspect]
     Indication: CROHN^S DISEASE
     Dates: start: 20111028, end: 20120111
  2. AZATHIOPRINE [Concomitant]
     Indication: GASTRIC DISORDER
  3. PERCOCET [Concomitant]
     Indication: PAIN
     Dosage: 5/325 1 -2 Q 6 HRS PRN

REACTIONS (3)
  - Testicular abscess [Unknown]
  - Dehydration [Unknown]
  - Testicular abscess [Recovered/Resolved]
